FAERS Safety Report 6707783-6 (Version None)
Quarter: 2010Q2

REPORT INFORMATION
  Report Type: 
  Country: None (occurrence: None)
  Receive Date: 20100503
  Receipt Date: 20090514
  Transmission Date: 20101027
  Serious: No
  Sender: FDA-Public Use
  Company Number: US-ASTRAZENECA-2009UW12558

PATIENT
  Sex: Female

DRUGS (5)
  1. NEXIUM [Suspect]
     Indication: ERUCTATION
     Route: 048
  2. FUROSEMIDE [Concomitant]
  3. POTASSIUM CL [Concomitant]
  4. WARFARIN [Concomitant]
  5. DIGOMIN [Concomitant]

REACTIONS (3)
  - CHEST DISCOMFORT [None]
  - ERUCTATION [None]
  - NAUSEA [None]
